FAERS Safety Report 12143176 (Version 9)
Quarter: 2016Q4

REPORT INFORMATION
  Report Type: Spontaneous
  Country: JP (occurrence: JP)
  Receive Date: 20160304
  Receipt Date: 20161228
  Transmission Date: 20170207
  Serious: Yes (Hospitalization, Disabling, Other)
  Sender: FDA-Public Use
  Company Number: PHJP2016JP004232

PATIENT
  Age: 52 Year
  Sex: Female

DRUGS (6)
  1. AFINITOR [Suspect]
     Active Substance: EVEROLIMUS
     Indication: BREAST CANCER METASTATIC
     Dosage: 5 MG, QD
     Route: 048
     Dates: start: 20151207, end: 201602
  2. CAPECITABINE. [Concomitant]
     Active Substance: CAPECITABINE
     Indication: METASTASES TO LYMPH NODES
     Dosage: UNK
     Route: 065
     Dates: start: 201205
  3. ABRAXANE [Concomitant]
     Active Substance: PACLITAXEL
     Indication: METASTASES TO LIVER
     Route: 065
     Dates: start: 201401
  4. AROMASIN [Concomitant]
     Active Substance: EXEMESTANE
     Indication: BREAST CANCER
     Route: 048
  5. CAPECITABINE. [Concomitant]
     Active Substance: CAPECITABINE
     Indication: METASTASES TO LIVER
  6. TAXOL [Concomitant]
     Active Substance: PACLITAXEL
     Indication: METASTASES TO LIVER
     Dosage: UNK
     Route: 065
     Dates: start: 201503

REACTIONS (2)
  - Malignant pleural effusion [Recovered/Resolved]
  - Hepatic atrophy [Not Recovered/Not Resolved]

NARRATIVE: CASE EVENT DATE: 20160301
